FAERS Safety Report 8530412-6 (Version None)
Quarter: 2012Q3

REPORT INFORMATION
  Report Type: 
  Country: None (occurrence: None)
  Receive Date: 20120723
  Receipt Date: 20120715
  Transmission Date: 20120928
  Serious: Yes (Other)
  Sender: FDA-Public Use
  Company Number: AU-PFIZER INC-2012170037

PATIENT
  Sex: Female

DRUGS (2)
  1. DIFLUCAN [Suspect]
     Dosage: UNK
     Dates: start: 20110101
  2. DIFLUCAN [Suspect]
     Dosage: 150 MG, UNK
     Dates: start: 20120709

REACTIONS (16)
  - EYE DISCHARGE [None]
  - ORAL MUCOSAL BLISTERING [None]
  - CHAPPED LIPS [None]
  - DYSPNOEA [None]
  - PHARYNGEAL OEDEMA [None]
  - SWELLING FACE [None]
  - EYE SWELLING [None]
  - VAGINAL MUCOSAL BLISTERING [None]
  - LIP HAEMORRHAGE [None]
  - LIP SWELLING [None]
  - DISCOMFORT [None]
  - FATIGUE [None]
  - ERYTHEMA [None]
  - DYSPHAGIA [None]
  - NAUSEA [None]
  - HEADACHE [None]
